FAERS Safety Report 8393953 (Version 4)
Quarter: 2012Q4

REPORT INFORMATION
  Report Type: 
  Country: US (occurrence: US)
  Receive Date: 20120207
  Receipt Date: 20121031
  Transmission Date: 20130627
  Serious: Yes (Hospitalization)
  Sender: FDA-Public Use
  Company Number: US-ELI_LILLY_AND_COMPANY-US201201008523

PATIENT
  Sex: Female

DRUGS (7)
  1. ZYPREXA [Suspect]
     Indication: BIPOLAR I DISORDER
     Dosage: 2.5 mg, qd
  2. ZYPREXA [Suspect]
     Dosage: 5 mg, qd
  3. ZYPREXA [Suspect]
     Indication: SLEEP DISORDER
     Dosage: 5 mg, qd
  4. ZYPREXA [Suspect]
     Dosage: 2.5 mg, UNK
  5. MIRALAX [Concomitant]
  6. AMITIZA [Concomitant]
  7. LORAZEPAM [Concomitant]

REACTIONS (12)
  - Insomnia [Not Recovered/Not Resolved]
  - Depression [Unknown]
  - Thyroid disorder [Unknown]
  - Drug dependence [Unknown]
  - Withdrawal syndrome [Unknown]
  - Headache [Unknown]
  - Dizziness [Unknown]
  - Constipation [Unknown]
  - Nausea [Unknown]
  - Intentional drug misuse [Unknown]
  - Off label use [Not Recovered/Not Resolved]
  - Drug dispensing error [Unknown]
